FAERS Safety Report 15399638 (Version 2)
Quarter: 2018Q3

REPORT INFORMATION
  Report Type: Spontaneous
  Country: CH (occurrence: CH)
  Receive Date: 20180918
  Receipt Date: 20180920
  Transmission Date: 20181010
  Serious: Yes (Other)
  Sender: FDA-Public Use
  Company Number: CH-AMGEN-CHESP2018129679

PATIENT
  Sex: Male

DRUGS (2)
  1. AIMOVIG [Suspect]
     Active Substance: ERENUMAB-AOOE
     Indication: MIGRAINE
     Dosage: UNK
     Route: 065
     Dates: start: 20180903
  2. AIMOVIG [Suspect]
     Active Substance: ERENUMAB-AOOE
     Dosage: UNK
     Route: 065

REACTIONS (5)
  - Sleep disorder [Unknown]
  - Asthenia [Unknown]
  - Migraine [Not Recovered/Not Resolved]
  - General physical health deterioration [Unknown]
  - Decreased appetite [Unknown]

NARRATIVE: CASE EVENT DATE: 20180903
